FAERS Safety Report 19085487 (Version 1)
Quarter: 2021Q2

REPORT INFORMATION
  Report Type: Spontaneous
  Country: US (occurrence: US)
  Receive Date: 20210401
  Receipt Date: 20210401
  Transmission Date: 20210717
  Serious: No
  Sender: FDA-Public Use
  Company Number: US-IBSA PHARMA-2020-IBS-00707

PATIENT
  Age: 73 Year
  Weight: 86 kg

DRUGS (1)
  1. FLECTOR [Suspect]
     Active Substance: DICLOFENAC EPOLAMINE
     Indication: BACK PAIN
     Dosage: UNK
     Route: 061
     Dates: start: 202002, end: 202002

REACTIONS (7)
  - Skin burning sensation [Recovered/Resolved]
  - Rhinitis allergic [Unknown]
  - Erythema [Unknown]
  - Off label use [Unknown]
  - Blister [Unknown]
  - Rash [Unknown]
  - Drug ineffective for unapproved indication [Unknown]
